FAERS Safety Report 12057598 (Version 16)
Quarter: 2017Q2

REPORT INFORMATION
  Report Type: Report from Study
  Country: US (occurrence: US)
  Receive Date: 20160209
  Receipt Date: 20170410
  Transmission Date: 20170829
  Serious: Yes (Hospitalization, Other)
  Sender: FDA-Public Use
  Company Number: US-ACTELION-A-NJ2015-116006

PATIENT
  Age: 73 Year
  Sex: Female
  Weight: 90.25 kg

DRUGS (8)
  1. WARFARIN [Concomitant]
     Active Substance: WARFARIN
  2. TYVASO [Suspect]
     Active Substance: TREPROSTINIL
     Indication: PRODUCT USED FOR UNKNOWN INDICATION
     Dosage: UNK
     Route: 065
     Dates: end: 20160922
  3. AMLODIPINE [Concomitant]
     Active Substance: AMLODIPINE BESYLATE
  4. INSULIN [Concomitant]
     Active Substance: INSULIN NOS
  5. OPSUMIT [Suspect]
     Active Substance: MACITENTAN
     Indication: PULMONARY ARTERIAL HYPERTENSION
     Dosage: 10 MG, QD
     Route: 048
     Dates: start: 20140127
  6. TREPROSTINIL DIOLAMIN [Suspect]
     Active Substance: TREPROSTINIL DIOLAMINE
     Indication: PRODUCT USED FOR UNKNOWN INDICATION
     Dosage: 1.125 MG, UNK
     Route: 048
  7. TYVASO [Suspect]
     Active Substance: TREPROSTINIL
     Dosage: UNK, 3 BREATHS
     Route: 065
     Dates: start: 20161005
  8. OPSUMIT [Suspect]
     Active Substance: MACITENTAN
     Dosage: 10 MG, QD
     Route: 048

REACTIONS (23)
  - Neuropathy peripheral [Unknown]
  - Nausea [Unknown]
  - Vomiting [Unknown]
  - Malaise [Unknown]
  - Pneumonitis [Unknown]
  - Seizure [Unknown]
  - Blood glucose decreased [Unknown]
  - Abdominal discomfort [Unknown]
  - Oedema peripheral [Unknown]
  - Urinary tract infection [Unknown]
  - Weight increased [Unknown]
  - Decreased appetite [Unknown]
  - Faeces soft [Unknown]
  - Headache [Unknown]
  - Oedema [Unknown]
  - Tremor [Unknown]
  - Eating disorder [Unknown]
  - Pulmonary hypertension [Unknown]
  - Fluid retention [Unknown]
  - Hypersomnia [Unknown]
  - Blood glucose fluctuation [Unknown]
  - Dyspnoea [Unknown]
  - Chest discomfort [Unknown]

NARRATIVE: CASE EVENT DATE: 20161005
